FAERS Safety Report 8793338 (Version 1)
Quarter: 2012Q4

REPORT INFORMATION
  Report Type: 
  Country: US (occurrence: US)
  Receive Date: 20120918
  Receipt Date: 20120918
  Transmission Date: 20130627
  Serious: Yes (Other)
  Sender: FDA-Public Use
  Company Number: CHPA2012US019486

PATIENT
  Age: 92 Year
  Sex: Female

DRUGS (1)
  1. LAMISIL [Suspect]
     Indication: TINEA PEDIS
     Dosage: UNK, UNK
     Route: 061

REACTIONS (4)
  - Urinary tract infection [Recovered/Resolved]
  - Genital discomfort [Recovered/Resolved]
  - Therapeutic response decreased [Unknown]
  - Self-medication [None]
